FAERS Safety Report 6366075-8 (Version None)
Quarter: 2009Q3

REPORT INFORMATION
  Report Type: 
  Country: None (occurrence: None)
  Receive Date: 20090919
  Receipt Date: 20090830
  Transmission Date: 20100115
  Serious: No
  Sender: FDA-Public Use
  Company Number: US-ABBOTT-09P-163-0594270-00

PATIENT
  Sex: Male
  Weight: 86.26 kg

DRUGS (6)
  1. HUMIRA [Suspect]
     Indication: CROHN'S DISEASE
     Dates: start: 20080705
  2. HUMIRA [Suspect]
     Dosage: 80MG DAY 15
  3. HUMIRA [Suspect]
     Dosage: DAY 29
     Dates: start: 20080801
  4. HUMIRA [Suspect]
     Dates: start: 20090301
  5. HUMIRA [Suspect]
  6. HUMIRA [Suspect]

REACTIONS (3)
  - ABDOMINAL DISTENSION [None]
  - DIARRHOEA [None]
  - HERPES ZOSTER [None]
